FAERS Safety Report 4707406-1 (Version None)
Quarter: 2005Q3

REPORT INFORMATION
  Report Type: 
  Country: None (occurrence: None)
  Receive Date: 20050701
  Receipt Date: 20050622
  Transmission Date: 20060218
  Serious: Yes (Other)
  Sender: FDA-Public Use
  Company Number: VISP-NO-0506L-0343

PATIENT
  Age: 68 Year
  Sex: Male

DRUGS (6)
  1. VISIPAQUE [Suspect]
     Indication: CONGESTIVE CARDIOMYOPATHY
     Dosage: SINGLE DOSE
  2. CARVEDILOL [Concomitant]
  3. CALCITRIOL [Concomitant]
  4. CALCIUM CARBONATE [Concomitant]
  5. POLYSTYRENE SULFONATE [Concomitant]
  6. EPOGEN [Concomitant]

REACTIONS (8)
  - ACCELERATED IDIOVENTRICULAR RHYTHM [None]
  - ARTERIOGRAM CORONARY ABNORMAL [None]
  - BLOOD PRESSURE DECREASED [None]
  - FALL [None]
  - HEART RATE DECREASED [None]
  - LOSS OF CONSCIOUSNESS [None]
  - POST PROCEDURAL COMPLICATION [None]
  - RESPIRATORY ARREST [None]
